FAERS Safety Report 9416432 (Version 2)
Quarter: 2013Q3

REPORT INFORMATION
  Report Type: Spontaneous
  Country: None (occurrence: None)
  Receive Date: 20130718
  Receipt Date: 20130724
  Transmission Date: 20140515
  Serious: Yes (Disabling, Other)
  Sender: FDA-Public Use
  Company Number: 1796704

PATIENT
  Age: 46 Year
  Sex: Female

DRUGS (3)
  1. IRINOTECAN HYDROCHLORIDE [Suspect]
     Indication: GASTROINTESTINAL CARCINOMA
     Dates: start: 20100419
  2. FLUOROURACIL [Concomitant]
  3. CALCIUM FOLINAT [Concomitant]

REACTIONS (6)
  - Ischaemic neuropathy [None]
  - Neuralgia [None]
  - Local swelling [None]
  - Arterial thrombosis [None]
  - Gait disturbance [None]
  - Hypersensitivity [None]
